FAERS Safety Report 9291019 (Version 2)
Quarter: 2013Q2

REPORT INFORMATION
  Report Type: Spontaneous
  Country: JP (occurrence: JP)
  Receive Date: 20130515
  Receipt Date: 20130521
  Transmission Date: 20140414
  Serious: Yes (Death)
  Sender: FDA-Public Use
  Company Number: JP-009507513-1305JPN008277

PATIENT
  Age: 50 Year
  Sex: Female

DRUGS (4)
  1. AMITRIPTYLINE HYDROCHLORIDE [Suspect]
     Route: 048
  2. ACONITE [Suspect]
  3. NORTRIPTYLINE [Concomitant]
  4. ETIZOLAM [Concomitant]

REACTIONS (1)
  - Death [Fatal]
